FAERS Safety Report 13042139 (Version 3)
Quarter: 2017Q4

REPORT INFORMATION
  Report Type: Spontaneous
  Country: US (occurrence: US)
  Receive Date: 20161219
  Receipt Date: 20171117
  Transmission Date: 20180320
  Serious: Yes (Other)
  Sender: FDA-Public Use
  Company Number: US-PFIZER INC-2016581950

PATIENT
  Age: 73 Year
  Sex: Male
  Weight: 79 kg

DRUGS (18)
  1. INLYTA [Suspect]
     Active Substance: AXITINIB
     Indication: RENAL CANCER
     Dosage: 5 MG, CYCLIC (1X/DAY FOR 4 WEEKS AND THEN OFF A WEEK)
  2. INLYTA [Suspect]
     Active Substance: AXITINIB
     Dosage: UNK
     Dates: end: 20170622
  3. ZYRTEC [Concomitant]
     Active Substance: CETIRIZINE HYDROCHLORIDE
     Dosage: 10 MG, UNK
  4. SODIUM CHLORIDE. [Concomitant]
     Active Substance: SODIUM CHLORIDE
     Dosage: UNK(0.9% INJECTION FLUSH 10 ML)
  5. INLYTA [Suspect]
     Active Substance: AXITINIB
     Dosage: 10 MG, CYCLIC (1X/DAYFOR 4 WEEKS AND THEN OFF A WEEK)
  6. INLYTA [Suspect]
     Active Substance: AXITINIB
     Dosage: 5 MG, 2X/DAY
     Dates: start: 201609, end: 201612
  7. INLYTA [Suspect]
     Active Substance: AXITINIB
     Dosage: 3 MG, 2X/DAY
     Route: 048
     Dates: start: 20170810
  8. TESSALON [Concomitant]
     Active Substance: BENZONATATE
     Dosage: 100 MG, UNK
  9. INLYTA [Suspect]
     Active Substance: AXITINIB
     Dosage: 5 MG, DAILY (1 MG 30 DAY SUPPLY,TAKE 2 MG Q MORNING, 3 MG HS)
  10. NATURE-THROID [Concomitant]
     Active Substance: THYROID, PORCINE
     Dosage: 65 MG, UNK
  11. MINIPRESS [Concomitant]
     Active Substance: PRAZOSIN HYDROCHLORIDE
     Dosage: 5 MG, UNK
  12. MEDROL [Concomitant]
     Active Substance: METHYLPREDNISOLONE
     Dosage: 4 MG, UNK
  13. HYZAAR [Concomitant]
     Active Substance: HYDROCHLOROTHIAZIDE\LOSARTAN POTASSIUM
     Dosage: UNK(LOSARTAN: 100 MG-HYDROCHLOROTHIAZIDE: 25 MG)
  14. METAMUCIL [Concomitant]
     Active Substance: PLANTAGO SEED
     Dosage: UNK (POWDER)
  15. ZANTAC [Concomitant]
     Active Substance: RANITIDINE HYDROCHLORIDE
     Dosage: 150 MG, UNK
  16. INLYTA [Suspect]
     Active Substance: AXITINIB
     Dosage: 10 MG, 2X/DAY
  17. UROXATRAL [Concomitant]
     Active Substance: ALFUZOSIN HYDROCHLORIDE
     Dosage: 10 MG, UNK (24 HR TABLET)
  18. LOPID [Concomitant]
     Active Substance: GEMFIBROZIL
     Dosage: 600 MG, UNK

REACTIONS (7)
  - Hypertension [Unknown]
  - Fatigue [Unknown]
  - Lymphadenopathy [Unknown]
  - Pulmonary pain [Unknown]
  - Neoplasm progression [Unknown]
  - Haemoptysis [Unknown]
  - Pneumonia [Unknown]

NARRATIVE: CASE EVENT DATE: 20170417
